FAERS Safety Report 10360330 (Version 2)
Quarter: 2014Q3

REPORT INFORMATION
  Report Type: Spontaneous
  Country: US (occurrence: US)
  Receive Date: 20140804
  Receipt Date: 20140822
  Transmission Date: 20150326
  Serious: Yes (Hospitalization)
  Sender: FDA-Public Use
  Company Number: US-BAYER-2014-113669

PATIENT
  Age: 25 Year
  Sex: Female
  Weight: 75.28 kg

DRUGS (2)
  1. MIRENA [Suspect]
     Active Substance: LEVONORGESTREL
     Indication: CONTRACEPTION
     Dosage: 20 MCG/24HR, CONT
     Route: 015
     Dates: start: 20060308, end: 20090609
  2. MIRENA [Suspect]
     Active Substance: LEVONORGESTREL
     Indication: CONTRACEPTION
     Dosage: 20 MCG/24HR, CONT
     Route: 015
     Dates: start: 20100723, end: 20120828

REACTIONS (7)
  - Anxiety [None]
  - Device dislocation [None]
  - Depression [None]
  - Emotional distress [None]
  - Uterine perforation [None]
  - Injury [None]
  - Pain [None]

NARRATIVE: CASE EVENT DATE: 201208
